FAERS Safety Report 14432631 (Version 2)
Quarter: 2018Q1

REPORT INFORMATION
  Report Type: Report from Study
  Country: BR (occurrence: BR)
  Receive Date: 20180124
  Receipt Date: 20180216
  Transmission Date: 20180509
  Serious: Yes (Other)
  Sender: FDA-Public Use
  Company Number: PHHY2018BR008677

PATIENT
  Sex: Male
  Weight: 95 kg

DRUGS (2)
  1. DUOTRAVATAN [BAC] [Suspect]
     Active Substance: TIMOLOL MALEATE\TRAVOPROST
     Indication: GLAUCOMA
     Dosage: 1 DRP, QD
     Route: 031
     Dates: start: 201703
  2. AZOPT [Concomitant]
     Active Substance: BRINZOLAMIDE
     Indication: GLAUCOMA
     Dosage: 1 DRP, EVERY 8 HOURS
     Route: 031
     Dates: start: 201801

REACTIONS (2)
  - Ocular hypertension [Not Recovered/Not Resolved]
  - Drug ineffective [Unknown]
